FAERS Safety Report 5151026-4 (Version None)
Quarter: 2006Q4

REPORT INFORMATION
  Report Type: 
  Country: None (occurrence: None)
  Receive Date: 20061115
  Receipt Date: 20060925
  Transmission Date: 20070319
  Serious: Yes (Hospitalization)
  Sender: FDA-Public Use
  Company Number: 2006UW18726

PATIENT
  Age: 24 Year
  Sex: Male
  Weight: 63.6 kg

DRUGS (1)
  1. NEXIUM [Suspect]
     Indication: GASTROINTESTINAL HAEMORRHAGE
     Route: 042
     Dates: start: 20060924

REACTIONS (1)
  - CONVULSION [None]
